FAERS Safety Report 11611153 (Version 12)
Quarter: 2016Q2

REPORT INFORMATION
  Report Type: Report from Study
  Country: CA (occurrence: CA)
  Receive Date: 20151008
  Receipt Date: 20160609
  Transmission Date: 20160815
  Serious: Yes (Hospitalization, Other)
  Sender: FDA-Public Use
  Company Number: PHHY2011CA100084

PATIENT
  Age: 72 Year
  Sex: Female

DRUGS (10)
  1. SANDOSTATIN LAR DEPOT [Suspect]
     Active Substance: OCTREOTIDE ACETATE
     Indication: CARCINOID SYNDROME
     Dosage: 30 MG, QMO (EVERY 4 WEEKS)
     Route: 030
     Dates: start: 20111017, end: 20160507
  2. LIPITOR [Concomitant]
     Active Substance: ATORVASTATIN CALCIUM
     Indication: PRODUCT USED FOR UNKNOWN INDICATION
     Route: 065
  3. FUROSEMIDE. [Concomitant]
     Active Substance: FUROSEMIDE
     Indication: PRODUCT USED FOR UNKNOWN INDICATION
     Route: 065
  4. CLONAZEPAM. [Concomitant]
     Active Substance: CLONAZEPAM
     Indication: PRODUCT USED FOR UNKNOWN INDICATION
     Route: 065
  5. APO HYDRO [Concomitant]
     Indication: PRODUCT USED FOR UNKNOWN INDICATION
     Route: 065
  6. VORTIOXETINE [Concomitant]
     Active Substance: VORTIOXETINE
     Indication: PRODUCT USED FOR UNKNOWN INDICATION
     Route: 065
  7. PANTOLOC//PANTOPRAZOLE SODIUM SESQUIHYDRATE [Concomitant]
     Active Substance: PANTOPRAZOLE SODIUM
     Indication: PRODUCT USED FOR UNKNOWN INDICATION
     Route: 065
  8. ALDARA [Concomitant]
     Active Substance: IMIQUIMOD
     Indication: PRODUCT USED FOR UNKNOWN INDICATION
     Route: 065
  9. SPIRONOLACTONE. [Concomitant]
     Active Substance: SPIRONOLACTONE
     Indication: PRODUCT USED FOR UNKNOWN INDICATION
     Dosage: UNK
     Route: 065
  10. COVERSYL//PERINDOPRIL ARGININE [Suspect]
     Active Substance: PERINDOPRIL ARGININE
     Indication: PRODUCT USED FOR UNKNOWN INDICATION
     Dosage: 2 MG, QD
     Route: 065
     Dates: start: 20150112

REACTIONS (41)
  - Metastases to liver [Unknown]
  - Metastases to bone [Unknown]
  - Exercise tolerance decreased [Unknown]
  - Needle issue [Unknown]
  - Faeces discoloured [Unknown]
  - Flatulence [Unknown]
  - Nausea [Unknown]
  - Blood pressure increased [Unknown]
  - Neoplasm [Unknown]
  - Hot flush [Unknown]
  - Vomiting [Unknown]
  - Malignant neoplasm progression [Unknown]
  - Back pain [Unknown]
  - General physical health deterioration [Unknown]
  - Abdominal distension [Unknown]
  - Decreased appetite [Unknown]
  - Abdominal pain upper [Recovering/Resolving]
  - Malaise [Unknown]
  - Pancreatic disorder [Unknown]
  - Peripheral swelling [Unknown]
  - Fluid intake reduced [Unknown]
  - Protein total decreased [Unknown]
  - Fatigue [Unknown]
  - Asthenia [Unknown]
  - No therapeutic response [Unknown]
  - Syncope [Unknown]
  - Oedema peripheral [Unknown]
  - Body temperature decreased [Unknown]
  - Abdominal pain [Unknown]
  - Injection site pain [Recovered/Resolved]
  - Blood pressure diastolic decreased [Unknown]
  - Flushing [Unknown]
  - Discomfort [Recovered/Resolved]
  - Alopecia [Unknown]
  - Therapeutic response decreased [Unknown]
  - Dehydration [Unknown]
  - Weight decreased [Unknown]
  - Diarrhoea [Unknown]
  - Cardiac failure congestive [Unknown]
  - Neuroendocrine tumour [Unknown]
  - Injection site mass [Recovered/Resolved]

NARRATIVE: CASE EVENT DATE: 20140925
